FAERS Safety Report 6360009-8 (Version None)
Quarter: 2009Q3

REPORT INFORMATION
  Report Type: 
  Country: None (occurrence: None)
  Receive Date: 20090917
  Receipt Date: 20090903
  Transmission Date: 20100115
  Serious: Yes (Life-Threatening, Hospitalization)
  Sender: FDA-Public Use
  Company Number: GB-ROCHE-654597

PATIENT
  Age: 48 Year
  Sex: Male

DRUGS (2)
  1. TAMIFLU [Suspect]
     Indication: DRUG USE FOR UNKNOWN INDICATION
     Dosage: DOSE:1 BD
     Route: 065
     Dates: start: 20090807, end: 20090811
  2. AMIODARONE HYDROCHLORIDE [Concomitant]

REACTIONS (3)
  - CHEST PAIN [None]
  - MALAISE [None]
  - MYOCARDITIS [None]
